FAERS Safety Report 4895743-X (Version None)
Quarter: 2006Q1

REPORT INFORMATION
  Report Type: 
  Country: None (occurrence: None)
  Receive Date: 20060124
  Receipt Date: 20060112
  Transmission Date: 20060701
  Serious: Yes (Other)
  Sender: FDA-Public Use
  Company Number: 2006BH000668

PATIENT
  Age: 55 Year
  Sex: Male

DRUGS (5)
  1. IGIV GENERIC [Suspect]
     Indication: NEUROPATHY PERIPHERAL
     Dates: start: 20010101
  2. IGIV GENERIC [Suspect]
     Indication: NEUROPATHY PERIPHERAL
     Dates: start: 20020101
  3. WARFARIN [Concomitant]
  4. ACETAMINOPHEN AND OXYCODONE HCL [Concomitant]
  5. AMITRIPTYLINE HCL [Concomitant]

REACTIONS (3)
  - ACTIVATED PARTIAL THROMBOPLASTIN TIME PROLONGED [None]
  - INTERNATIONAL NORMALISED RATIO DECREASED [None]
  - PULMONARY EMBOLISM [None]
